FAERS Safety Report 17035977 (Version 3)
Quarter: 2021Q1

REPORT INFORMATION
  Report Type: Spontaneous
  Country: JP (occurrence: JP)
  Receive Date: 20191115
  Receipt Date: 20210204
  Transmission Date: 20210419
  Serious: Yes (Other)
  Sender: FDA-Public Use
  Company Number: JP-SUNOVION-2019SUN004924

PATIENT
  Age: 6 Decade
  Sex: Male
  Weight: 65 kg

DRUGS (2)
  1. LUNESTA [Suspect]
     Active Substance: ESZOPICLONE
     Dosage: 10 TO 20 TABLETS/DAY
     Route: 048
  2. CERCINE [Concomitant]
     Active Substance: DIAZEPAM
     Dosage: DOSE UNKNOWN
     Route: 048

REACTIONS (7)
  - Muscle twitching [Recovering/Resolving]
  - Tremor [Unknown]
  - Hyperhidrosis [Unknown]
  - Seizure [Recovering/Resolving]
  - Intentional overdose [Unknown]
  - Musculoskeletal stiffness [Unknown]
  - Altered state of consciousness [Recovering/Resolving]
